FAERS Safety Report 21424086 (Version 1)
Quarter: 2022Q4

REPORT INFORMATION
  Report Type: Spontaneous
  Country: CH (occurrence: CH)
  Receive Date: 20221007
  Receipt Date: 20221007
  Transmission Date: 20230113
  Serious: Yes (Hospitalization, Other)
  Sender: FDA-Public Use
  Company Number: None

PATIENT
  Age: 13 Year
  Sex: Male

DRUGS (4)
  1. CYCLOPHOSPHAMIDE [Suspect]
     Active Substance: CYCLOPHOSPHAMIDE
     Indication: Acute lymphocytic leukaemia
     Dosage: 1 DOSAGE FORM, AIEOP-BFM ALL 2009 PROTOCOL IIIB 2, 06/08/2017 IIIB 3
     Route: 065
     Dates: start: 20160520, end: 201805
  2. METHOTREXATE [Suspect]
     Active Substance: METHOTREXATE
     Indication: Acute lymphocytic leukaemia
     Dosage: AIEOP-BFM ALL 2009 PROTOCOL
     Route: 065
     Dates: start: 20160520, end: 201805
  3. CYTARABINE [Suspect]
     Active Substance: CYTARABINE
     Indication: Acute lymphocytic leukaemia
     Dosage: AIEOP-BFM ALL 2009 PROTOCOL
     Route: 065
     Dates: start: 20160520, end: 201805
  4. MIDAZOLAM [Concomitant]
     Active Substance: MIDAZOLAM
     Indication: Product used for unknown indication
     Dosage: 10 MG, AS NECESSARY
     Route: 002
     Dates: start: 20211112

REACTIONS (8)
  - Epilepsy [Unknown]
  - Posterior reversible encephalopathy syndrome [Unknown]
  - Hippocampal sclerosis [Unknown]
  - Hypogammaglobulinaemia [Recovering/Resolving]
  - Hypothyroidism [Unknown]
  - Immunodeficiency common variable [Unknown]
  - Sepsis [Unknown]
  - Nasopharyngitis [Unknown]

NARRATIVE: CASE EVENT DATE: 20161101
